FAERS Safety Report 7104265-7 (Version None)
Quarter: 2010Q4

REPORT INFORMATION
  Report Type: 
  Country: None (occurrence: None)
  Receive Date: 20101115
  Receipt Date: 20100616
  Transmission Date: 20110411
  Serious: No
  Sender: FDA-Public Use
  Company Number: US-ALLERGAN-1007897US

PATIENT
  Age: 56 Year
  Sex: Female

DRUGS (4)
  1. BOTOX COSMETIC [Suspect]
     Indication: SKIN WRINKLING
     Dosage: UNK
     Dates: start: 20100610, end: 20100610
  2. DYSPORT [Suspect]
     Indication: SKIN WRINKLING
     Dosage: UNK
     Dates: start: 20100609, end: 20100609
  3. OXYCODONE HCL [Concomitant]
     Indication: NECK PAIN
  4. AMBIEN [Concomitant]
     Indication: INSOMNIA

REACTIONS (1)
  - HEADACHE [None]
